FAERS Safety Report 13081928 (Version 1)
Quarter: 2017Q1

REPORT INFORMATION
  Report Type: Report from Study
  Country: PE (occurrence: PE)
  Receive Date: 20170103
  Receipt Date: 20170103
  Transmission Date: 20170428
  Serious: Yes (Death)
  Sender: FDA-Public Use
  Company Number: PE-ASTRAZENECA-2016SF38347

PATIENT
  Age: 89 Year
  Sex: Female

DRUGS (2)
  1. BETALOC ZOK [Suspect]
     Active Substance: METOPROLOL SUCCINATE
     Route: 048
     Dates: start: 20101004
  2. ATACAND [Suspect]
     Active Substance: CANDESARTAN CILEXETIL
     Route: 048
     Dates: start: 20150601

REACTIONS (3)
  - Cardio-respiratory arrest [Fatal]
  - Pneumonia [Fatal]
  - Off label use [Unknown]
